FAERS Safety Report 20301534 (Version 9)
Quarter: 2023Q1

REPORT INFORMATION
  Report Type: Spontaneous
  Country: GB (occurrence: GB)
  Receive Date: 20220105
  Receipt Date: 20230106
  Transmission Date: 20230417
  Serious: Yes (Death, Life-Threatening, Hospitalization, Disabling, Other)
  Sender: FDA-Public Use
  Company Number: GB-LICONSA-2019-004448

PATIENT
  Age: 76 Year
  Sex: Male
  Weight: 69 kg

DRUGS (65)
  1. NITROGLYCERIN [Suspect]
     Active Substance: NITROGLYCERIN
     Indication: Product used for unknown indication
     Dosage: UNK
     Route: 065
  2. NITROGLYCERIN [Suspect]
     Active Substance: NITROGLYCERIN
     Indication: Product used for unknown indication
     Dosage: UNK
     Route: 065
  3. CEFUROXIME [Suspect]
     Active Substance: CEFUROXIME
     Indication: Product used for unknown indication
     Dosage: UNK
     Route: 065
     Dates: start: 20180131
  4. BISOPROLOL [Suspect]
     Active Substance: BISOPROLOL
     Indication: Product used for unknown indication
     Dosage: UNK
     Route: 065
     Dates: start: 20180131
  5. OMEPRAZOLE [Suspect]
     Active Substance: OMEPRAZOLE
     Indication: Duodenal ulcer
     Dosage: 20 MG, MONTHLY
     Route: 048
  6. OMEPRAZOLE [Suspect]
     Active Substance: OMEPRAZOLE
     Dosage: 20 MILLIGRAM, QD, (DAILY)
     Route: 048
  7. OMEPRAZOLE [Suspect]
     Active Substance: OMEPRAZOLE
     Dosage: 20 MILLIGRAM
     Route: 048
  8. CLARITHROMYCIN [Interacting]
     Active Substance: CLARITHROMYCIN
     Indication: Pneumonia
     Dosage: 500 MG, 2X/DAY, (1000 MG QD)
     Route: 042
     Dates: start: 20180127, end: 20180131
  9. CLARITHROMYCIN [Interacting]
     Active Substance: CLARITHROMYCIN
     Dosage: 9000 MG
     Route: 042
  10. CLARITHROMYCIN [Interacting]
     Active Substance: CLARITHROMYCIN
     Dosage: 500 MILLIGRAM, QOD
     Route: 042
     Dates: start: 20180127
  11. CLARITHROMYCIN [Interacting]
     Active Substance: CLARITHROMYCIN
     Dosage: 1000 MILLIGRAM, QD
     Route: 042
     Dates: start: 20180127, end: 20180130
  12. DEXTROSE [Suspect]
     Active Substance: DEXTROSE
     Indication: Product used for unknown indication
     Dosage: UNK
     Route: 065
  13. OMEPRAZOLE [Suspect]
     Active Substance: OMEPRAZOLE
     Indication: Duodenal ulcer
     Dosage: 20 MILLIGRAM, QD, (DAILY)
     Route: 065
  14. OMEPRAZOLE [Suspect]
     Active Substance: OMEPRAZOLE
     Dosage: 20 MILLIGRAM, MONTHLY
     Route: 065
  15. OMEPRAZOLE [Suspect]
     Active Substance: OMEPRAZOLE
     Dosage: 20 MILLIGRAM, QD, (OMEPRAZOLE CHEMO IBERICA 20 MG DAILY)
     Route: 048
  16. NITROGLYCERIN [Suspect]
     Active Substance: NITROGLYCERIN
     Indication: Product used for unknown indication
     Dosage: UNK
     Route: 065
  17. HYDROCORTISONE SODIUM SUCCINATE [Suspect]
     Active Substance: HYDROCORTISONE SODIUM SUCCINATE
     Indication: Product used for unknown indication
     Dosage: 50 MILLIGRAM, TID
     Route: 042
     Dates: start: 20180201
  18. HYDROCORTISONE SODIUM SUCCINATE [Suspect]
     Active Substance: HYDROCORTISONE SODIUM SUCCINATE
     Dosage: 150 MILLIGRAM, TID
     Route: 042
     Dates: start: 20180201
  19. DOXYCYCLINE HYCLATE [Suspect]
     Active Substance: DOXYCYCLINE HYCLATE
     Indication: Product used for unknown indication
     Dosage: 1 DOSAGE FORM
     Route: 065
  20. ENVARSUS XR [Suspect]
     Active Substance: TACROLIMUS
     Indication: Renal transplant
     Dosage: 1.5 MG, 2X/DAY
     Route: 048
     Dates: start: 20180127, end: 20180131
  21. ENVARSUS XR [Suspect]
     Active Substance: TACROLIMUS
     Indication: Prophylaxis against transplant rejection
     Dosage: 27 MG
     Route: 065
  22. ENVARSUS XR [Suspect]
     Active Substance: TACROLIMUS
     Dosage: 3 MG, 1X/DAY
     Route: 065
     Dates: start: 20180127, end: 20180131
  23. TACROLIMUS [Interacting]
     Active Substance: TACROLIMUS
     Indication: Renal transplant
     Dosage: 15 MG, 2X/DAY
     Route: 048
  24. TACROLIMUS [Interacting]
     Active Substance: TACROLIMUS
     Indication: Prophylaxis against transplant rejection
     Dosage: 1.5 MG, 2X/DAY
     Route: 048
     Dates: start: 20100127, end: 20180130
  25. TACROLIMUS [Interacting]
     Active Substance: TACROLIMUS
     Dosage: 1.5 MG
     Route: 048
     Dates: start: 20180127
  26. TACROLIMUS [Interacting]
     Active Substance: TACROLIMUS
     Dosage: 2 MG, 2X/DAY REGIMEN DOSE: 8775
     Route: 048
     Dates: start: 20180128
  27. TACROLIMUS [Interacting]
     Active Substance: TACROLIMUS
     Dosage: 4 MG, 1X/DAY
     Route: 048
     Dates: start: 20180128
  28. TACROLIMUS [Interacting]
     Active Substance: TACROLIMUS
     Indication: Renal transplant
     Dosage: 30 MG, DAILY
     Route: 048
  29. TACROLIMUS [Interacting]
     Active Substance: TACROLIMUS
     Dosage: 3 MG DAILY
     Route: 065
     Dates: start: 20180127, end: 20180131
  30. SENNOSIDES A AND B [Suspect]
     Active Substance: SENNOSIDES A AND B
     Indication: Product used for unknown indication
     Dosage: UNK
     Route: 048
  31. DOXYCYCLINE [Suspect]
     Active Substance: DOXYCYCLINE
     Indication: Product used for unknown indication
     Dosage: UNK
     Route: 065
  32. HYDROCORTISONE [Suspect]
     Active Substance: HYDROCORTISONE
     Indication: Product used for unknown indication
     Dosage: 450 MILLIGRAM, QD
     Route: 065
  33. HYDROCORTISONE [Suspect]
     Active Substance: HYDROCORTISONE
     Dosage: 150 MILLIGRAM, QD
     Route: 065
  34. HYDROCORTISONE [Suspect]
     Active Substance: HYDROCORTISONE
     Dosage: 150 MILLIGRAM, QD
     Route: 065
  35. ALFACALCIDOL [Suspect]
     Active Substance: ALFACALCIDOL
     Indication: Product used for unknown indication
     Dosage: 500 MILLIGRAM, QD
     Route: 048
  36. PREDNISOLONE [Concomitant]
     Active Substance: PREDNISOLONE
     Indication: Product used for unknown indication
     Dosage: 5 MG, DAILY
     Route: 048
  37. PREDNISOLONE [Concomitant]
     Active Substance: PREDNISOLONE
     Dosage: 10 MILLIGRAM, QD
     Route: 048
     Dates: start: 20180127
  38. PREDNISOLONE [Concomitant]
     Active Substance: PREDNISOLONE
     Dosage: 5 MILLIGRAM, AM
     Route: 048
  39. PREDNISOLONE [Concomitant]
     Active Substance: PREDNISOLONE
     Dosage: 5 MILLIGRAM QMO
     Route: 048
  40. EPLERENONE [Concomitant]
     Active Substance: EPLERENONE
     Indication: Product used for unknown indication
     Dosage: 25 MG, DAILY
     Route: 048
     Dates: end: 20180130
  41. EPLERENONE [Concomitant]
     Active Substance: EPLERENONE
     Dosage: 25 MG, MONTHLY
     Route: 048
  42. GLICLAZIDE [Concomitant]
     Active Substance: GLICLAZIDE
     Indication: Product used for unknown indication
     Dosage: 40 MILLIGRAM, QD
     Route: 048
  43. GLICLAZIDE [Concomitant]
     Active Substance: GLICLAZIDE
     Dosage: 40 MILLIGRAM, MONTHLY
     Route: 048
  44. FUROSEMIDE [Concomitant]
     Active Substance: FUROSEMIDE
     Indication: Product used for unknown indication
     Dosage: 40 MILLIGRAM, QD
     Route: 048
  45. FUROSEMIDE [Concomitant]
     Active Substance: FUROSEMIDE
     Dosage: 80 MILLIGRAM, QD
     Route: 048
     Dates: end: 20180130
  46. FUROSEMIDE [Concomitant]
     Active Substance: FUROSEMIDE
     Dosage: 120 MILLIGRAM, QD, (80 MG MORNING, 40 MG 12 P.M.)
     Route: 065
  47. CHOLECALCIFEROL [Concomitant]
     Active Substance: CHOLECALCIFEROL
     Indication: Product used for unknown indication
     Dosage: 20 NANOGRAM, AM, (MORNING)
     Route: 048
  48. CHOLECALCIFEROL [Concomitant]
     Active Substance: CHOLECALCIFEROL
     Dosage: 20 NANOGRAM, MONTHLY
     Route: 065
  49. SENNA LEAF [Concomitant]
     Active Substance: SENNA LEAF
     Indication: Product used for unknown indication
     Dosage: 15 MILLIGRAM, QD,(15 MG 1X/DAY)
     Route: 048
  50. BETAHISTINE [Concomitant]
     Active Substance: BETAHISTINE
     Indication: Product used for unknown indication
     Dosage: 8 MG, MONTHLY
     Route: 048
  51. BETAHISTINE [Concomitant]
     Active Substance: BETAHISTINE
     Dosage: 8 MG, DAILY MORNING
     Route: 065
  52. ALBUTEROL [Concomitant]
     Active Substance: ALBUTEROL
     Indication: Product used for unknown indication
     Dosage: UNK
     Route: 065
  53. ALLOPURINOL [Concomitant]
     Active Substance: ALLOPURINOL
     Indication: Product used for unknown indication
     Dosage: 100 MILLIGRAM, QD
     Route: 048
  54. ALLOPURINOL [Concomitant]
     Active Substance: ALLOPURINOL
     Dosage: 100 MILLIGRAM, QD
     Route: 048
  55. GLUCAGON [Concomitant]
     Active Substance: GLUCAGON
     Indication: Product used for unknown indication
     Dosage: UNK
     Route: 030
     Dates: start: 20180130
  56. HYDROCORTISONE [Concomitant]
     Active Substance: HYDROCORTISONE
     Indication: Product used for unknown indication
     Dosage: 50 MILLIGRAM, TID, (50 MG, 3X/DAY)
     Route: 042
     Dates: start: 20180201
  57. HYDROCORTISONE [Concomitant]
     Active Substance: HYDROCORTISONE
     Dosage: 50 MILLIGRAM, TID, (50 MG, 3X/DAY)
     Route: 042
     Dates: start: 20180201
  58. HYDROCORTISONE [Concomitant]
     Active Substance: HYDROCORTISONE
     Dosage: 50 MILLIGRAM, TID, (50 MG, 3X/DAY)
     Route: 042
  59. GLUCOGEL [Concomitant]
     Indication: Product used for unknown indication
     Dosage: UNK
     Route: 065
     Dates: start: 20180130
  60. ALFACALCIDOL [Concomitant]
     Active Substance: ALFACALCIDOL
     Indication: Product used for unknown indication
     Dosage: 500 NANOGRAM, QD
     Route: 048
  61. NITROGLYCERIN [Concomitant]
     Active Substance: NITROGLYCERIN
     Indication: Product used for unknown indication
     Dosage: 50 MILLIGRAM, TID, (50 MG, 3X/DAY)
     Route: 065
     Dates: start: 20180201
  62. DEXTROSE [Concomitant]
     Active Substance: DEXTROSE
     Indication: Product used for unknown indication
     Dosage: UNK
     Route: 065
     Dates: start: 20180130
  63. DOXYCYCLINE [Concomitant]
     Active Substance: DOXYCYCLINE
     Indication: Product used for unknown indication
     Dosage: UNK
     Route: 065
  64. NITROGLYCERIN [Concomitant]
     Active Substance: NITROGLYCERIN
     Indication: Product used for unknown indication
     Dosage: UNK
     Route: 065
  65. CALCIUM CARBONATE [Concomitant]
     Active Substance: CALCIUM CARBONATE
     Dosage: UNK
     Route: 048

REACTIONS (34)
  - Oesophageal perforation [Fatal]
  - Oesophageal carcinoma [Fatal]
  - Ascites [Fatal]
  - Myocardial ischaemia [Fatal]
  - Drug interaction [Fatal]
  - Acute kidney injury [Fatal]
  - Cardiac failure congestive [Fatal]
  - Immunosuppressant drug level increased [Fatal]
  - Pneumonia [Fatal]
  - Sepsis [Fatal]
  - Dyspnoea [Fatal]
  - Multimorbidity [Fatal]
  - Toxicity to various agents [Fatal]
  - Swelling [Fatal]
  - Pleural effusion [Fatal]
  - Pyrexia [Fatal]
  - Cardiomegaly [Fatal]
  - Transplant failure [Fatal]
  - Hypoglycaemia [Fatal]
  - Dysphagia [Fatal]
  - Superinfection [Fatal]
  - Rash [Fatal]
  - Rales [Fatal]
  - Soft tissue mass [Fatal]
  - Lung consolidation [Fatal]
  - Inflammatory marker increased [Fatal]
  - Productive cough [Fatal]
  - Drug level increased [Fatal]
  - Cough [Fatal]
  - Malaise [Fatal]
  - Renal impairment [Fatal]
  - Lower respiratory tract infection [Unknown]
  - Haemoptysis [Unknown]
  - Labelled drug-drug interaction medication error [Unknown]

NARRATIVE: CASE EVENT DATE: 20180118
